FAERS Safety Report 11646208 (Version 1)
Quarter: 2015Q4

REPORT INFORMATION
  Report Type: Spontaneous
  Country: US (occurrence: US)
  Receive Date: 20151020
  Receipt Date: 20151020
  Transmission Date: 20160304
  Serious: No
  Sender: FDA-Public Use
  Company Number: US-ROCHE-ITM201506IM018093

PATIENT
  Sex: Female
  Weight: 70.37 kg

DRUGS (1)
  1. ESBRIET [Suspect]
     Active Substance: PIRFENIDONE
     Indication: IDIOPATHIC PULMONARY FIBROSIS
     Dosage: 3 CAPSULES (801 MG) BY MOUTH 3 TIMES A DAY WITH FOOD
     Route: 048
     Dates: start: 20150515

REACTIONS (3)
  - Hypotension [Unknown]
  - Diarrhoea [Unknown]
  - Nausea [Unknown]
